FAERS Safety Report 17116007 (Version 1)
Quarter: 2019Q4

REPORT INFORMATION
  Report Type: Spontaneous
  Country: TR (occurrence: TR)
  Receive Date: 20191205
  Receipt Date: 20191205
  Transmission Date: 20200122
  Serious: Yes (Hospitalization)
  Sender: FDA-Public Use
  Company Number: TR-ENDO PHARMACEUTICALS INC-2019-110477

PATIENT
  Age: 74 Year
  Sex: Female

DRUGS (1)
  1. DARIFENACIN HYDROBROMIDE. [Suspect]
     Active Substance: DARIFENACIN HYDROBROMIDE
     Indication: URINARY INCONTINENCE
     Dosage: UNK UNKNOWN, OD
     Route: 065

REACTIONS (1)
  - Oesophagitis [Recovering/Resolving]
